FAERS Safety Report 6643192-6 (Version None)
Quarter: 2010Q1

REPORT INFORMATION
  Report Type: 
  Country: None (occurrence: None)
  Receive Date: 20100319
  Receipt Date: 20100312
  Transmission Date: 20100710
  Serious: Yes (Hospitalization)
  Sender: FDA-Public Use
  Company Number: PHHO2010DE03907

PATIENT
  Age: 73 Year
  Sex: Female
  Weight: 67 kg

DRUGS (2)
  1. AFINITOR [Suspect]
     Indication: HEPATIC CANCER METASTATIC
     Dosage: 5 MG/DAY
     Route: 048
     Dates: start: 20100224
  2. AVASTIN [Suspect]
     Indication: HEPATIC CANCER METASTATIC
     Dosage: 5 MG/KG EVERY 14 DAYS
     Route: 048

REACTIONS (4)
  - CELLS IN URINE [None]
  - DYSPNOEA [None]
  - INFLAMMATION [None]
  - URINARY TRACT INFECTION [None]
